FAERS Safety Report 7640166-3 (Version None)
Quarter: 2011Q3

REPORT INFORMATION
  Report Type: 
  Country: None (occurrence: None)
  Receive Date: 20110728
  Receipt Date: 20110628
  Transmission Date: 20111222
  Serious: No
  Sender: FDA-Public Use
  Company Number: US-BAYER-2011-058853

PATIENT
  Sex: Female

DRUGS (2)
  1. FINACEA [Suspect]
     Dosage: UNK, BID
     Route: 061
     Dates: start: 20110101, end: 20110101
  2. FINACEA [Suspect]
     Indication: ROSACEA
     Dosage: UNK, QD
     Route: 061
     Dates: start: 20110501, end: 20110101

REACTIONS (3)
  - SWELLING FACE [None]
  - CHEMICAL BURN OF SKIN [None]
  - EYE SWELLING [None]
